FAERS Safety Report 15858780 (Version 1)
Quarter: 2019Q1

REPORT INFORMATION
  Report Type: Spontaneous
  Country: US (occurrence: US)
  Receive Date: 20190123
  Receipt Date: 20190123
  Transmission Date: 20190417
  Serious: No
  Sender: FDA-Public Use
  Company Number: None

PATIENT

DRUGS (2)
  1. METHYLPHENIDATE ER [Suspect]
     Active Substance: METHYLPHENIDATE
  2. METHLYPHENIDATE ER- KREMERS [Concomitant]

REACTIONS (2)
  - Transcription medication error [None]
  - Product dispensing issue [None]
